FAERS Safety Report 25803617 (Version 1)
Quarter: 2025Q3

REPORT INFORMATION
  Report Type: Spontaneous
  Country: EU (occurrence: EU)
  Receive Date: 20250915
  Receipt Date: 20250915
  Transmission Date: 20251021
  Serious: Yes (Hospitalization, Other)
  Sender: OTSUKA
  Company Number: EU-MMM-Otsuka-9QF5WNHZ

PATIENT
  Age: 29 Year
  Sex: Male

DRUGS (3)
  1. ABILIFY MAINTENA [Suspect]
     Active Substance: ARIPIPRAZOLE
     Indication: Schizophrenia
     Dosage: 300 MG, QM, (IN THE LEFT BUTTOCK)
     Route: 030
     Dates: start: 2015, end: 202509
  2. ABILIFY MAINTENA [Suspect]
     Active Substance: ARIPIPRAZOLE
     Indication: Panic disorder
     Dosage: 300 MG, QM, (IN THE LEFT BUTTOCK)
     Route: 030
     Dates: start: 2008
  3. ABILIFY MAINTENA [Suspect]
     Active Substance: ARIPIPRAZOLE
     Dosage: 400 MG, QM, (IN THE LEFT BUTTOCK)
     Route: 030
     Dates: end: 2015

REACTIONS (11)
  - Nephrolithiasis [Recovered/Resolved]
  - Affective disorder [Recovering/Resolving]
  - Injection site bruising [Not Recovered/Not Resolved]
  - Negative thoughts [Recovering/Resolving]
  - Mood swings [Unknown]
  - Irritability [Not Recovered/Not Resolved]
  - Depression [Recovering/Resolving]
  - Weight increased [Not Recovered/Not Resolved]
  - Fatigue [Recovered/Resolved]
  - Product administered to patient of inappropriate age [Recovered/Resolved]
  - Product use in unapproved indication [Unknown]
